FAERS Safety Report 21989936 (Version 5)
Quarter: 2023Q4

REPORT INFORMATION
  Report Type: Spontaneous
  Country: JP (occurrence: JP)
  Receive Date: 20230214
  Receipt Date: 20231128
  Transmission Date: 20240109
  Serious: Yes (Hospitalization, Other)
  Sender: FDA-Public Use
  Company Number: JP-PFIZER INC-202300062702

PATIENT
  Age: 17 Year
  Sex: Female
  Weight: 45.5 kg

DRUGS (4)
  1. SULFASALAZINE [Suspect]
     Active Substance: SULFASALAZINE
     Indication: Colitis ulcerative
     Dosage: 500 MG, 4X/DAY
     Route: 048
     Dates: start: 20221101, end: 20221213
  2. CALONAL [Concomitant]
     Active Substance: ACETAMINOPHEN
     Indication: Pyrexia
     Dosage: 300 MG, 3X/DAY
     Route: 048
     Dates: start: 20221207, end: 20221215
  3. PREDONINE [Concomitant]
     Active Substance: PREDNISOLONE
     Indication: Colitis ulcerative
     Dosage: 10 MG, 1X/DAY
     Route: 048
     Dates: start: 20221017, end: 20221215
  4. REBAMIPIDE [Concomitant]
     Active Substance: REBAMIPIDE
     Dosage: 100 MG, 3X/DAY
     Route: 048
     Dates: start: 20221207, end: 20221215

REACTIONS (15)
  - Drug eruption [Recovered/Resolved]
  - Diarrhoea [Recovered/Resolved]
  - Respiratory disorder [Recovered/Resolved]
  - Drug reaction with eosinophilia and systemic symptoms [Unknown]
  - Measles [Recovered/Resolved]
  - Scrub typhus [Recovered/Resolved]
  - Pyrexia [Recovering/Resolving]
  - Liver disorder [Recovering/Resolving]
  - Conjunctival hyperaemia [Unknown]
  - Lymphocyte morphology abnormal [Unknown]
  - Infectious mononucleosis [Unknown]
  - Rubella [Recovered/Resolved]
  - Headache [Unknown]
  - Nausea [Unknown]
  - Off label use [Unknown]

NARRATIVE: CASE EVENT DATE: 20221207
